FAERS Safety Report 25063894 (Version 1)
Quarter: 2025Q1

REPORT INFORMATION
  Report Type: Spontaneous
  Country: US (occurrence: US)
  Receive Date: 20250311
  Receipt Date: 20250311
  Transmission Date: 20250409
  Serious: No
  Sender: BRISTOL-MYERS SQUIBB COMPANY
  Company Number: US-BRISTOL-MYERS SQUIBB COMPANY-2025-035313

PATIENT
  Sex: Male

DRUGS (1)
  1. NIVOLUMAB\RELATLIMAB [Suspect]
     Active Substance: NIVOLUMAB\RELATLIMAB
     Indication: Product used for unknown indication

REACTIONS (1)
  - Secondary adrenocortical insufficiency [Unknown]
